FAERS Safety Report 8309087-7 (Version None)
Quarter: 2012Q2

REPORT INFORMATION
  Report Type: 
  Country: None (occurrence: None)
  Receive Date: 20120424
  Receipt Date: 20120418
  Transmission Date: 20120825
  Serious: Yes (Hospitalization)
  Sender: FDA-Public Use
  Company Number: JP-B.I. PHARMACEUTICALS,INC./RIDGEFIELD-2012-BP-06302NB

PATIENT
  Sex: Female
  Weight: 56 kg

DRUGS (15)
  1. REBAMIPIDE [Concomitant]
     Indication: GASTRITIS
     Dosage: 300 MG
     Route: 048
     Dates: start: 20100401, end: 20120319
  2. SENNOSIDE [Concomitant]
     Indication: CONSTIPATION
     Dosage: 36 MG
     Route: 048
     Dates: start: 20100401, end: 20120319
  3. ALOSENN [Concomitant]
     Indication: CONSTIPATION
     Dosage: 32 G
     Route: 048
     Dates: start: 20100401, end: 20120319
  4. BASEN [Suspect]
     Indication: DIABETES MELLITUS
     Dosage: 0.4 MG
     Route: 048
     Dates: start: 20110409, end: 20120319
  5. ASPIRIN [Concomitant]
     Indication: ANGINA PECTORIS
     Dosage: 100 MG
     Route: 048
     Dates: start: 20100401, end: 20120319
  6. CEFDINIR [Concomitant]
  7. DILTIAZEM HCL [Concomitant]
     Indication: ANGINA PECTORIS
     Dosage: 100 MG
     Route: 048
     Dates: start: 20100401, end: 20120319
  8. LIVALO [Concomitant]
     Indication: DYSLIPIDAEMIA
     Dosage: 1 MG
     Route: 048
     Dates: start: 20100401, end: 20120319
  9. DIOVAN [Concomitant]
     Indication: HYPERTENSION
     Dosage: 40 MG
     Route: 048
     Dates: start: 20100401, end: 20120319
  10. TRAZENTA [Suspect]
     Indication: DIABETES MELLITUS
     Dosage: 5 MG
     Route: 048
     Dates: start: 20120307, end: 20120319
  11. SIGMART [Concomitant]
     Indication: ANGINA PECTORIS
     Dosage: 15 MG
     Route: 048
     Dates: start: 20100401, end: 20120319
  12. OPALMON [Concomitant]
     Indication: LUMBAR SPINAL STENOSIS
     Dosage: 15 MG
     Route: 048
     Dates: start: 20100401, end: 20120319
  13. AMARYL [Concomitant]
     Indication: DIABETES MELLITUS
     Dosage: 0.5 MG
     Route: 048
     Dates: start: 20100401, end: 20120319
  14. VITAMIN B12 [Concomitant]
     Indication: NEURALGIA
     Dosage: 1500 MG
     Route: 048
     Dates: start: 20100401, end: 20120319
  15. ALDACTONE [Concomitant]
     Indication: CARDIAC FAILURE
     Dosage: 15 MG
     Route: 048
     Dates: start: 20100401, end: 20120319

REACTIONS (1)
  - CONSTIPATION [None]
